FAERS Safety Report 16051359 (Version 1)
Quarter: 2019Q1

REPORT INFORMATION
  Report Type: Spontaneous
  Country: DE (occurrence: DE)
  Receive Date: 20190308
  Receipt Date: 20190308
  Transmission Date: 20190418
  Serious: Yes (Other)
  Sender: FDA-Public Use
  Company Number: DE-AUROBINDO-AUR-APL-2019-011587

PATIENT

DRUGS (4)
  1. ORFIRIL [Suspect]
     Active Substance: VALPROATE SODIUM
     Indication: JUVENILE MYOCLONIC EPILEPSY
     Dosage: UNK, MAX. 3 X 8 ML
     Route: 065
     Dates: start: 201306, end: 201809
  2. LAMOTRIGINE. [Suspect]
     Active Substance: LAMOTRIGINE
     Indication: JUVENILE MYOCLONIC EPILEPSY
     Dosage: UNK
     Route: 065
  3. ORFIRIL [Suspect]
     Active Substance: VALPROATE SODIUM
     Dosage: UNK, MAX. 3 X 8 ML
     Route: 065
     Dates: start: 201810
  4. ORFIRIL [Suspect]
     Active Substance: VALPROATE SODIUM
     Dosage: UNK, MAX. 3 X 8 ML
     Route: 065
     Dates: start: 201901

REACTIONS (2)
  - Drug ineffective [Recovered/Resolved]
  - Rash [Not Recovered/Not Resolved]
